FAERS Safety Report 13930475 (Version 1)
Quarter: 2017Q3

REPORT INFORMATION
  Report Type: Spontaneous
  Country: US (occurrence: US)
  Receive Date: 20170901
  Receipt Date: 20170901
  Transmission Date: 20171127
  Serious: Yes (Other)
  Sender: FDA-Public Use
  Company Number: PHHY2017US127155

PATIENT
  Age: 68 Year
  Sex: Female

DRUGS (2)
  1. AMIODARONE [Suspect]
     Active Substance: AMIODARONE
     Indication: ATRIAL FIBRILLATION
     Route: 040
  2. AMIODARONE [Suspect]
     Active Substance: AMIODARONE
     Dosage: 400 MG, QD
     Route: 048

REACTIONS (5)
  - Pleural effusion [Recovering/Resolving]
  - Lung infiltration [Recovering/Resolving]
  - Lung disorder [Recovering/Resolving]
  - Dyspnoea at rest [Recovering/Resolving]
  - Hypoxia [Recovering/Resolving]
